FAERS Safety Report 9672204 (Version 1)
Quarter: 2013Q4

REPORT INFORMATION
  Report Type: Spontaneous
  Country: US (occurrence: US)
  Receive Date: 20131106
  Receipt Date: 20131106
  Transmission Date: 20140711
  Serious: No
  Sender: FDA-Public Use
  Company Number: US-ENDO PHARMACEUTICALS INC.-HCDA20120031

PATIENT
  Sex: Female

DRUGS (3)
  1. HYDROCODONE/ACETAMINOPHEN 10MG/325MG [Suspect]
     Indication: MIGRAINE
     Dosage: 60/1950 MG
     Route: 048
     Dates: end: 201205
  2. HYDROCODONE/ACETAMINOPHEN 10MG/325MG [Suspect]
     Indication: INTERVERTEBRAL DISC DEGENERATION
  3. HYDROCODONE/ACETAMINOPHEN 10MG/325MG [Suspect]
     Indication: FIBROMYALGIA

REACTIONS (2)
  - Drug tolerance [Recovered/Resolved]
  - Drug ineffective [Recovered/Resolved]
